FAERS Safety Report 4600007-5 (Version None)
Quarter: 2005Q1

REPORT INFORMATION
  Report Type: 
  Country: None (occurrence: None)
  Receive Date: 20050303
  Receipt Date: 20050224
  Transmission Date: 20050727
  Serious: Yes (Life-Threatening)
  Sender: FDA-Public Use
  Company Number: 2005SE01145

PATIENT
  Age: 77 Year
  Sex: Female
  Weight: 80 kg

DRUGS (1)
  1. MARCAINE [Suspect]
     Route: 024
     Dates: start: 20050222

REACTIONS (3)
  - FEMORAL NECK FRACTURE [None]
  - HYPOTENSION [None]
  - LOSS OF CONSCIOUSNESS [None]
